FAERS Safety Report 4655985-5 (Version None)
Quarter: 2005Q2

REPORT INFORMATION
  Report Type: 
  Country: None (occurrence: None)
  Receive Date: 20050505
  Receipt Date: 20050505
  Transmission Date: 20051028
  Serious: Yes (Other)
  Sender: FDA-Public Use
  Company Number: None

PATIENT
  Age: 47 Year
  Sex: Female
  Weight: 86.1834 kg

DRUGS (3)
  1. ULTRAM [Suspect]
     Indication: ANALGESIC EFFECT
     Dosage: 50 MG 3X/DAY AS NEEDED (MOSTLY TOOK 3X/DAY)
     Dates: start: 20050101, end: 20050401
  2. ULTRAM [Suspect]
     Indication: WRIST SURGERY
     Dosage: 50 MG 3X/DAY AS NEEDED (MOSTLY TOOK 3X/DAY)
     Dates: start: 20050101, end: 20050401
  3. SYNTHROID [Concomitant]

REACTIONS (5)
  - ANOREXIA [None]
  - CONFUSIONAL STATE [None]
  - DRUG WITHDRAWAL SYNDROME [None]
  - TREMOR [None]
  - VOMITING [None]
